FAERS Safety Report 20911164 (Version 1)
Quarter: 2022Q2

REPORT INFORMATION
  Report Type: Spontaneous
  Country: US (occurrence: None)
  Receive Date: 20220602
  Receipt Date: 20220602
  Transmission Date: 20220721
  Serious: Yes (Hospitalization, Other)
  Sender: FDA-Public Use
  Company Number: None

PATIENT
  Age: 75 Year
  Sex: Female
  Weight: 74.25 kg

DRUGS (19)
  1. BEBTELOVIMAB [Suspect]
     Active Substance: BEBTELOVIMAB
     Indication: COVID-19
     Dosage: OTHER FREQUENCY : 1 TIME DOSE;?OTHER ROUTE : IV INFUSION INJECTION;?
     Route: 050
     Dates: start: 20220602, end: 20220602
  2. EZETIMIBE (ZETIA) [Concomitant]
  3. PANTOPRAZOLE (PROTONIX) [Concomitant]
  4. DICYLOMINE (BENTYK) [Concomitant]
  5. PEPCID [Concomitant]
     Active Substance: FAMOTIDINE
  6. HYDROXYCHLOROQUINE (PLAQUENIL) [Concomitant]
  7. ACETAMINOPHEN (TYLENOL) [Concomitant]
  8. CEPHALEXIN (KEFLEX) [Concomitant]
  9. DICLOFENAC (VOLTAREN) [Concomitant]
  10. COUMADIN [Concomitant]
     Active Substance: WARFARIN SODIUM
  11. MIRTAZAPINE (REMERON) [Concomitant]
  12. SENNA (SENOKOT) [Concomitant]
  13. DOCUSATE SODIUM [Concomitant]
  14. VITAMIN D3 [Concomitant]
     Active Substance: CHOLECALCIFEROL
  15. VITAMIN B12 [Concomitant]
     Active Substance: CYANOCOBALAMIN
  16. CALCIUM CARBONATE (CA) [Concomitant]
  17. FLAXSEED OIL [Concomitant]
  18. POLYETHYLENE (MIRALAX) [Concomitant]
  19. ASPERCREME WITH LIDOCAINE [Concomitant]

REACTIONS (12)
  - Adverse drug reaction [None]
  - Vertigo [None]
  - Dizziness [None]
  - Heart rate decreased [None]
  - Oxygen saturation decreased [None]
  - Respiratory rate decreased [None]
  - Tremor [None]
  - Infusion related reaction [None]
  - Blood pressure decreased [None]
  - Unresponsive to stimuli [None]
  - Loss of consciousness [None]
  - Nausea [None]

NARRATIVE: CASE EVENT DATE: 20220602
